FAERS Safety Report 18338045 (Version 1)
Quarter: 2020Q4

REPORT INFORMATION
  Report Type: Spontaneous
  Country: ES (occurrence: ES)
  Receive Date: 20201002
  Receipt Date: 20201002
  Transmission Date: 20210113
  Serious: Yes (Life-Threatening, Hospitalization)
  Sender: FDA-Public Use
  Company Number: ES-TEVA-2020-ES-1833349

PATIENT
  Age: 83 Year
  Sex: Female

DRUGS (5)
  1. TRAMADOL HIDROCLORURO [Suspect]
     Active Substance: TRAMADOL HYDROCHLORIDE
     Indication: PAIN
     Dosage: FREQUENCY UNIT: 1 DAY
     Route: 048
     Dates: start: 20130528, end: 20160704
  2. FUROSEMIDA [Interacting]
     Active Substance: FUROSEMIDE
     Indication: CARDIOMYOPATHY
     Dosage: 40 MILLIGRAM DAILY; DOSE UNIT FREQUENCY: 40 MG, DOSE PER DOSE: 40 MG, NO. OF SHOTS PER UNIT OF FREQU
     Route: 048
     Dates: start: 20090709, end: 20160704
  3. ACLIDINIO BROMURO [Concomitant]
     Indication: CHRONIC OBSTRUCTIVE PULMONARY DISEASE
     Route: 048
     Dates: start: 20140108
  4. ESPIRONOLACTONA [Interacting]
     Active Substance: SPIRONOLACTONE
     Indication: CARDIOMYOPATHY
     Dosage: 25 MILLIGRAM DAILY; DOSE UNIT FREQUENCY: 25 MG, DOSE PER DOSE: 25 MG, NO. OF SHOTS PER UNIT OF FREQU
     Route: 048
     Dates: start: 20120227, end: 20160704
  5. LISINOPRIL. [Concomitant]
     Active Substance: LISINOPRIL
     Indication: HYPERTENSION
     Dosage: 20 MILLIGRAM DAILY; DOSE UNIT FREQUENCY: 20 MG, DOSE PER DOSE: 20 MG, NO. OF SHOTS PER UNIT OF FREQU
     Route: 048
     Dates: start: 201109

REACTIONS (2)
  - Drug interaction [Unknown]
  - Inappropriate antidiuretic hormone secretion [Recovered/Resolved]

NARRATIVE: CASE EVENT DATE: 20160704
